FAERS Safety Report 25406158 (Version 2)
Quarter: 2025Q3

REPORT INFORMATION
  Report Type: Spontaneous
  Country: US (occurrence: US)
  Receive Date: 20250606
  Receipt Date: 20250704
  Transmission Date: 20251021
  Serious: Yes (Other)
  Sender: JOHNSON AND JOHNSON
  Company Number: US-JNJFOC-20250533869

PATIENT
  Sex: Male

DRUGS (1)
  1. CARVYKTI [Suspect]
     Active Substance: CILTACABTAGENE AUTOLEUCEL
     Indication: Product used for unknown indication
     Route: 065

REACTIONS (8)
  - Neurotoxicity [Unknown]
  - Stenosis [Unknown]
  - Gait disturbance [Unknown]
  - Physical disability [Unknown]
  - Personality change [Unknown]
  - Muscular weakness [Unknown]
  - Fall [Unknown]
  - Cognitive disorder [Unknown]
